FAERS Safety Report 17662190 (Version 1)
Quarter: 2020Q2

REPORT INFORMATION
  Report Type: Spontaneous
  Country: PL (occurrence: PL)
  Receive Date: 20200413
  Receipt Date: 20200413
  Transmission Date: 20200713
  Serious: Yes (Other)
  Sender: FDA-Public Use
  Company Number: PL-US-PROVELL PHARMACEUTICALS LLC-9156130

PATIENT
  Sex: Male

DRUGS (2)
  1. EUTHYROX [Suspect]
     Active Substance: LEVOTHYROXINE SODIUM
     Indication: PRODUCT USED FOR UNKNOWN INDICATION
  2. LETROX [Concomitant]
     Active Substance: LEVOTHYROXINE SODIUM
     Indication: PRODUCT USED FOR UNKNOWN INDICATION

REACTIONS (15)
  - Increased appetite [Unknown]
  - Dark circles under eyes [Unknown]
  - Irritability [Unknown]
  - Muscular weakness [Unknown]
  - Hypothyroidism [Unknown]
  - Heart rate irregular [Unknown]
  - Restlessness [Unknown]
  - Infection [Unknown]
  - Chest pain [Not Recovered/Not Resolved]
  - Myalgia [Unknown]
  - Feeling abnormal [Unknown]
  - Hypermetabolism [Not Recovered/Not Resolved]
  - Anxiety [Not Recovered/Not Resolved]
  - Psychomotor hyperactivity [Not Recovered/Not Resolved]
  - Gastric disorder [Unknown]
